FAERS Safety Report 7396561-3 (Version None)
Quarter: 2011Q1

REPORT INFORMATION
  Report Type: 
  Country: None (occurrence: None)
  Receive Date: 20110331
  Receipt Date: 20110331
  Transmission Date: 20110831
  Serious: Yes (Life-Threatening, Other)
  Sender: FDA-Public Use
  Company Number: None

PATIENT
  Sex: Female
  Weight: 116.5744 kg

DRUGS (1)
  1. OXCARBAZEPINE [Suspect]
     Indication: SCHIZOAFFECTIVE DISORDER
     Dosage: 300 MG 1 QD PO
     Route: 048
     Dates: start: 20090101

REACTIONS (4)
  - PRODUCT SUBSTITUTION ISSUE [None]
  - EYE MOVEMENT DISORDER [None]
  - CONVULSION [None]
  - PRODUCT COATING ISSUE [None]
